FAERS Safety Report 8988600 (Version 3)
Quarter: 2013Q1

REPORT INFORMATION
  Report Type: Spontaneous
  Country: US (occurrence: US)
  Receive Date: 20121227
  Receipt Date: 20130204
  Transmission Date: 20140127
  Serious: Yes (Hospitalization)
  Sender: FDA-Public Use
  Company Number: US-GILEAD-2012-0066947

PATIENT
  Age: 39 Year
  Sex: Female

DRUGS (3)
  1. LETAIRIS [Suspect]
     Indication: PULMONARY ARTERIAL HYPERTENSION
     Dosage: 10 MG, PRN
     Route: 048
     Dates: start: 20110617
  2. EPOPROSTENOL [Suspect]
  3. REVATIO [Suspect]

REACTIONS (4)
  - Palpitations [Unknown]
  - Stress [Unknown]
  - Infusion site pruritus [Unknown]
  - Cardiac flutter [Unknown]
